FAERS Safety Report 9757893 (Version 2)
Quarter: 2014Q1

REPORT INFORMATION
  Report Type: Spontaneous
  Country: DE (occurrence: DE)
  Receive Date: 20131216
  Receipt Date: 20140219
  Transmission Date: 20141002
  Serious: Yes (Other)
  Sender: FDA-Public Use
  Company Number: DE-JNJFOC-20131208318

PATIENT
  Sex: Male

DRUGS (4)
  1. XARELTO [Suspect]
     Indication: CEREBROVASCULAR ACCIDENT PROPHYLAXIS
     Route: 048
  2. XARELTO [Suspect]
     Indication: ATRIAL FIBRILLATION
     Route: 048
  3. ENAHEXAL (ENALAPRIL MALEATE) [Concomitant]
     Route: 065
  4. TAMBOCOR [Concomitant]
     Route: 065

REACTIONS (3)
  - Thrombosis in device [Recovering/Resolving]
  - Vena cava thrombosis [Recovering/Resolving]
  - Drug ineffective [Unknown]
